FAERS Safety Report 4277068-9 (Version None)
Quarter: 2004Q1

REPORT INFORMATION
  Report Type: 
  Country: None (occurrence: None)
  Receive Date: 20040120
  Receipt Date: 20040105
  Transmission Date: 20041129
  Serious: Yes (Death, Hospitalization)
  Sender: FDA-Public Use
  Company Number: 2004-DE-00158YA

PATIENT
  Age: 77 Year
  Sex: Male

DRUGS (7)
  1. OMIX (TAMSULOSIN) (NR) [Suspect]
     Dosage: 0.4 MG (NR) PO
     Route: 048
     Dates: start: 20031030, end: 20031107
  2. RIMIFON (NR) [Suspect]
     Indication: TUBERCULOSIS
     Dosage: PO
     Route: 048
     Dates: start: 20031030, end: 20031107
  3. RIFADINE (RIFAMPICIN) (NR) [Suspect]
     Indication: TUBERCULOSIS
     Dosage: PO
     Route: 048
     Dates: start: 20031030, end: 20031107
  4. PRAVASTATIN [Concomitant]
  5. ACETYLSALICYLIC ACID SRT [Concomitant]
  6. FLECAINIDE ACETATE [Concomitant]
  7. ACEBUTOLOL HCL [Concomitant]

REACTIONS (2)
  - CARDIAC ARREST [None]
  - THROMBOCYTOPENIA [None]
